FAERS Safety Report 15929190 (Version 1)
Quarter: 2019Q1

REPORT INFORMATION
  Report Type: Spontaneous
  Country: CH (occurrence: CH)
  Receive Date: 20190206
  Receipt Date: 20190206
  Transmission Date: 20190417
  Serious: Yes (Hospitalization, Other)
  Sender: FDA-Public Use
  Company Number: CH-009507513-1901CHE011241

PATIENT
  Sex: Female

DRUGS (1)
  1. IMPLANON [Suspect]
     Active Substance: ETONOGESTREL
     Indication: CHEMICAL CONTRACEPTION
     Dosage: 1 DOSAGE FORM
     Route: 059
     Dates: start: 20180728

REACTIONS (4)
  - Dizziness [Unknown]
  - Syncope [Unknown]
  - Hyperventilation [Unknown]
  - Mood swings [Unknown]

NARRATIVE: CASE EVENT DATE: 20180728
